FAERS Safety Report 12798971 (Version 1)
Quarter: 2016Q3

REPORT INFORMATION
  Report Type: Spontaneous
  Country: US (occurrence: US)
  Receive Date: 20160930
  Receipt Date: 20160930
  Transmission Date: 20161109
  Serious: Yes (Disabling)
  Sender: FDA-Public Use
  Company Number: None

PATIENT
  Age: 53 Year
  Sex: Female
  Weight: 47.7 kg

DRUGS (1)
  1. CIPROFLOXACIN HLC [Suspect]
     Active Substance: CIPROFLOXACIN
     Indication: URINARY TRACT INFECTION
     Dosage: ?          QUANTITY:1 TABLET(S);?
     Route: 048

REACTIONS (13)
  - Muscular weakness [None]
  - Neuralgia [None]
  - Dysphagia [None]
  - Anxiety [None]
  - Weight decreased [None]
  - Asthenia [None]
  - Headache [None]
  - Malaise [None]
  - Paraesthesia [None]
  - Pain [None]
  - Oesophageal spasm [None]
  - Hypoaesthesia [None]
  - Heart rate irregular [None]

NARRATIVE: CASE EVENT DATE: 20160427
